FAERS Safety Report 15013220 (Version 1)
Quarter: 2018Q2

REPORT INFORMATION
  Report Type: Report from Study
  Country: US (occurrence: US)
  Receive Date: 20180614
  Receipt Date: 20180614
  Transmission Date: 20180711
  Serious: Yes (Other)
  Sender: FDA-Public Use
  Company Number: US-MYLANLABS-2018M1039398

PATIENT
  Age: 41 Year
  Sex: Male

DRUGS (4)
  1. AZATHIOPRINE. [Suspect]
     Active Substance: AZATHIOPRINE
     Indication: DERMATITIS EXFOLIATIVE GENERALISED
     Route: 065
  2. THALIDOMIDE [Suspect]
     Active Substance: THALIDOMIDE
     Indication: DERMATITIS EXFOLIATIVE GENERALISED
     Route: 065
  3. ETANERCEPT [Suspect]
     Active Substance: ETANERCEPT
     Indication: DERMATITIS EXFOLIATIVE GENERALISED
     Route: 065
  4. INTERFERON [Suspect]
     Active Substance: INTERFERON
     Indication: DERMATITIS EXFOLIATIVE GENERALISED
     Route: 065

REACTIONS (2)
  - Lymphomatoid papulosis [Recovered/Resolved]
  - Mycosis fungoides [Recovered/Resolved]
